FAERS Safety Report 16168741 (Version 1)
Quarter: 2019Q2

REPORT INFORMATION
  Report Type: Spontaneous
  Country: US (occurrence: US)
  Receive Date: 20190408
  Receipt Date: 20190408
  Transmission Date: 20190711
  Serious: Yes (Life-Threatening, Hospitalization)
  Sender: FDA-Public Use
  Company Number: US-BAYER-2019-066663

PATIENT
  Age: 7 Year
  Sex: Female
  Weight: 27 kg

DRUGS (4)
  1. ACETYLSALICYLIC ACID (CARDIO) [Suspect]
     Active Substance: ASPIRIN
  2. WARFARIN [Interacting]
     Active Substance: WARFARIN
  3. ENALAPRIL [Concomitant]
     Active Substance: ENALAPRIL
  4. HEPARIN [Interacting]
     Active Substance: HEPARIN SODIUM

REACTIONS (5)
  - Off label use [None]
  - Pulmonary haemorrhage [None]
  - Product administration error [None]
  - Product use issue [None]
  - Labelled drug-drug interaction medication error [None]
